FAERS Safety Report 5674161-0 (Version None)
Quarter: 2008Q1

REPORT INFORMATION
  Report Type: 
  Country: None (occurrence: None)
  Receive Date: 20080320
  Receipt Date: 20080317
  Transmission Date: 20080703
  Serious: No
  Sender: FDA-Public Use
  Company Number: PHNU2007DE03763

PATIENT
  Sex: Male

DRUGS (1)
  1. DESFERAL [Suspect]
     Indication: HAEMOSIDEROSIS
     Dosage: 2000 MG, QD
     Route: 058
     Dates: start: 20070901

REACTIONS (2)
  - INJECTION SITE INFLAMMATION [None]
  - INJECTION SITE PAIN [None]
